FAERS Safety Report 8537627-1 (Version None)
Quarter: 2012Q3

REPORT INFORMATION
  Report Type: 
  Country: None (occurrence: None)
  Receive Date: 20120725
  Receipt Date: 20120628
  Transmission Date: 20120928
  Serious: No
  Sender: FDA-Public Use
  Company Number: US-ASTRAZENECA-2012SE44320

PATIENT
  Age: 62 Year
  Sex: Female

DRUGS (5)
  1. EQUATE HEADACHE RELIEF [Concomitant]
  2. NEXIUM [Suspect]
     Route: 048
  3. ASPIRIN [Suspect]
     Route: 065
  4. CHLORPHENIRAMINE MALEATE [Concomitant]
     Indication: HYPERSENSITIVITY
  5. AZO [Concomitant]

REACTIONS (2)
  - IDIOSYNCRATIC DRUG REACTION [None]
  - DRUG DOSE OMISSION [None]
